FAERS Safety Report 16799047 (Version 1)
Quarter: 2019Q3

REPORT INFORMATION
  Report Type: Spontaneous
  Country: US (occurrence: US)
  Receive Date: 20190912
  Receipt Date: 20190912
  Transmission Date: 20191005
  Serious: No
  Sender: FDA-Public Use
  Company Number: US-BEH-2019106149

PATIENT
  Age: 77 Year
  Sex: Female

DRUGS (1)
  1. HIZENTRA [Suspect]
     Active Substance: HUMAN IMMUNOGLOBULIN G
     Indication: PULMONARY ARTERIAL HYPERTENSION
     Dosage: 10 GRAM, QW
     Route: 058
     Dates: start: 20190705

REACTIONS (3)
  - No adverse event [Unknown]
  - Skin mass [Unknown]
  - Product use in unapproved indication [Unknown]

NARRATIVE: CASE EVENT DATE: 20190819
